FAERS Safety Report 6495230-1 (Version None)
Quarter: 2009Q4

REPORT INFORMATION
  Report Type: 
  Country: None (occurrence: None)
  Receive Date: 20091214
  Receipt Date: 20090515
  Transmission Date: 20100525
  Serious: No
  Sender: FDA-Public Use
  Company Number: US-BRISTOL-MYERS SQUIBB COMPANY-14626436

PATIENT
  Age: 51 Year
  Sex: Female
  Weight: 65 kg

DRUGS (6)
  1. ABILIFY [Suspect]
     Dates: start: 20090514
  2. PRISTIQ [Concomitant]
  3. LISINOPRIL [Concomitant]
  4. CALCIUM [Concomitant]
  5. MULTI-VITAMIN [Concomitant]
  6. CLONAZEPAM [Concomitant]

REACTIONS (1)
  - LETHARGY [None]
